FAERS Safety Report 8430306-0 (Version None)
Quarter: 2012Q2

REPORT INFORMATION
  Report Type: 
  Country: None (occurrence: None)
  Receive Date: 20120606
  Receipt Date: 20120606
  Transmission Date: 20120825
  Serious: No
  Sender: FDA-Public Use
  Company Number: None

PATIENT
  Sex: Male

DRUGS (1)
  1. TYSABRI [Suspect]
     Dosage: 300MG Q4W IV
     Route: 042
     Dates: start: 20120104, end: 20120520

REACTIONS (1)
  - DRUG HYPERSENSITIVITY [None]
